FAERS Safety Report 10026795 (Version 1)
Quarter: 2014Q1

REPORT INFORMATION
  Report Type: Spontaneous
  Country: PT (occurrence: None)
  Receive Date: 20140318
  Receipt Date: 20140318
  Transmission Date: 20141002
  Serious: Yes (Other)
  Sender: FDA-Public Use
  Company Number: 2014P1001976

PATIENT
  Age: 37 Year
  Sex: Female

DRUGS (3)
  1. OXYTOCIN [Suspect]
     Route: 042
  2. MISOPROSTOL [Suspect]
     Route: 060
  3. PROPOFOL [Concomitant]

REACTIONS (10)
  - Supraventricular tachycardia [None]
  - Haemoglobin decreased [None]
  - Platelet count decreased [None]
  - Acute pulmonary oedema [None]
  - Hyperthermia [None]
  - Polyuria [None]
  - Vasodilatation [None]
  - Lung consolidation [None]
  - Acute respiratory failure [None]
  - Maternal exposure during pregnancy [None]
